FAERS Safety Report 6132739-4 (Version None)
Quarter: 2009Q1

REPORT INFORMATION
  Report Type: 
  Country: None (occurrence: None)
  Receive Date: 20090324
  Receipt Date: 20090324
  Transmission Date: 20090719
  Serious: Yes (Hospitalization)
  Sender: FDA-Public Use
  Company Number: None

PATIENT
  Sex: Female
  Weight: 51.36 kg

DRUGS (2)
  1. CISPLATIN [Suspect]
     Dosage: 72 MG
  2. ALIMTA [Suspect]
     Dosage: 720 MG

REACTIONS (1)
  - VAGINAL HAEMORRHAGE [None]
